FAERS Safety Report 8988553 (Version 2)
Quarter: 2013Q1

REPORT INFORMATION
  Report Type: Spontaneous
  Country: IT (occurrence: IT)
  Receive Date: 20121228
  Receipt Date: 20130117
  Transmission Date: 20140127
  Serious: Yes (Hospitalization)
  Sender: FDA-Public Use
  Company Number: IT-PFIZER INC-2012330923

PATIENT
  Age: 81 Year
  Sex: Female

DRUGS (4)
  1. EFEXOR ER [Suspect]
     Dosage: 75 MG, 1X/DAY
     Route: 048
     Dates: start: 20120101, end: 20121205
  2. SINTROM [Suspect]
     Indication: ATRIAL FIBRILLATION
     Dosage: 4 MG, AS NEEDED
     Route: 048
     Dates: start: 20100101, end: 20121205
  3. LASIX [Concomitant]
     Dosage: 25 MG, UNK
     Route: 048
  4. CARDICOR [Concomitant]
     Dosage: 2 DF, UNK
     Route: 048

REACTIONS (2)
  - Rectal haemorrhage [Recovering/Resolving]
  - International normalised ratio increased [Recovering/Resolving]
